FAERS Safety Report 5354163-4 (Version None)
Quarter: 2007Q2

REPORT INFORMATION
  Report Type: 
  Country: None (occurrence: None)
  Receive Date: 20070612
  Receipt Date: 20070529
  Transmission Date: 20071010
  Serious: Yes (Other)
  Sender: FDA-Public Use
  Company Number: US-ELI_LILLY_AND_COMPANY-2007PV028281

PATIENT
  Age: 61 Year
  Sex: Female
  Weight: 83.01 kg

DRUGS (9)
  1. EXENATIDE [Suspect]
     Indication: DIABETES MELLITUS NON-INSULIN-DEPENDENT
     Dosage: 10 UG, 2/D
     Route: 058
     Dates: start: 20060703
  2. EXENATIDE [Suspect]
     Dosage: 5 UG, 2/D
     Route: 058
     Dates: start: 20060607, end: 20060703
  3. GLYBURIDE [Concomitant]
     Indication: DIABETES MELLITUS
     Dosage: UNK, DAILY (1/D)
     Route: 048
     Dates: start: 20061201
  4. METFORMIN HCL [Concomitant]
     Indication: DIABETES MELLITUS
     Dosage: UNK, UNK
  5. TRAMADOL HCL [Concomitant]
  6. OMACOR [Concomitant]
  7. LISINOPRIL [Concomitant]
  8. VYTORIN [Concomitant]
  9. TRICOR [Concomitant]

REACTIONS (6)
  - BLOOD GLUCOSE DECREASED [None]
  - BLOOD GLUCOSE INCREASED [None]
  - DECREASED APPETITE [None]
  - INSOMNIA [None]
  - RENAL FAILURE [None]
  - WEIGHT DECREASED [None]
